FAERS Safety Report 14128333 (Version 1)
Quarter: 2017Q4

REPORT INFORMATION
  Report Type: Report from Study
  Country: None (occurrence: US)
  Receive Date: 20171026
  Receipt Date: 20171026
  Transmission Date: 20180321
  Serious: Yes (Hospitalization)
  Sender: FDA-Public Use
  Company Number: US-BIOVITRUM-2017US0998

PATIENT
  Age: 17 Year
  Sex: Male

DRUGS (2)
  1. ORFADIN [Suspect]
     Active Substance: NITISINONE
     Route: 048
     Dates: start: 20140424
  2. ORFADIN [Suspect]
     Active Substance: NITISINONE
     Indication: TYROSINAEMIA
     Route: 048
     Dates: start: 20170525

REACTIONS (3)
  - Hypertension [Unknown]
  - Pain [Unknown]
  - Dehydration [Unknown]

NARRATIVE: CASE EVENT DATE: 201710
